FAERS Safety Report 13456323 (Version 1)
Quarter: 2017Q2

REPORT INFORMATION
  Report Type: Spontaneous
  Country: FR (occurrence: FR)
  Receive Date: 20170419
  Receipt Date: 20170419
  Transmission Date: 20170830
  Serious: Yes (Hospitalization, Other)
  Sender: FDA-Public Use
  Company Number: FR-PFIZER INC-2017160111

PATIENT
  Age: 13 Year
  Sex: Male

DRUGS (3)
  1. LANVIS [Suspect]
     Active Substance: THIOGUANINE ANHYDROUS
     Dosage: 80 MG, SINGLE
     Route: 048
     Dates: start: 20170130, end: 20170220
  2. BACTRIM [Concomitant]
     Active Substance: SULFAMETHOXAZOLE\TRIMETHOPRIM
     Dosage: 800 MG, 1X/DAY
     Route: 048
  3. ARACYTINE [Suspect]
     Active Substance: CYTARABINE
     Dosage: 41.5 MG, 2X/DAY
     Route: 058
     Dates: start: 20170130, end: 20170221

REACTIONS (3)
  - Venoocclusive liver disease [Recovered/Resolved]
  - Haemorrhagic diathesis [Recovered/Resolved]
  - Thrombocytopenia [Recovered/Resolved]

NARRATIVE: CASE EVENT DATE: 201703
